FAERS Safety Report 11614015 (Version 1)
Quarter: 2015Q4

REPORT INFORMATION
  Report Type: Spontaneous
  Country: US (occurrence: US)
  Receive Date: 20151008
  Receipt Date: 20151008
  Transmission Date: 20160304
  Serious: No
  Sender: FDA-Public Use
  Company Number: US-UNIQUE PHARMACEUTICAL LABORATORIES-2015PAC00013

PATIENT
  Age: 36 Year
  Sex: Male
  Weight: 83.45 kg

DRUGS (6)
  1. CIPROFLOXACIN. [Suspect]
     Active Substance: CIPROFLOXACIN
     Dosage: UNK
  2. CHIA SEED [Concomitant]
     Dosage: UNK, AS NEEDED
  3. MEGA FOOD PROBIOTIC 20 BILLION [Concomitant]
     Dosage: 1 CAPSULES, 2X/DAY
     Dates: start: 20141221
  4. CIPROFLOXACIN. [Suspect]
     Active Substance: CIPROFLOXACIN
     Indication: PROSTATITIS
     Dosage: 500 MG, 2X/DAY
     Route: 048
     Dates: start: 20141216, end: 20141218
  5. CIPROFLOXACIN. [Suspect]
     Active Substance: CIPROFLOXACIN
     Dosage: 500 MG, 2X/DAY
     Route: 048
     Dates: start: 20141221
  6. PSYLLIUM HUSK [Concomitant]
     Active Substance: PSYLLIUM HUSK
     Dosage: UNK, AS NEEDED

REACTIONS (7)
  - Constipation [Not Recovered/Not Resolved]
  - Prostatitis [Unknown]
  - Diarrhoea [Not Recovered/Not Resolved]
  - Dysuria [Unknown]
  - Abdominal pain [Recovered/Resolved]
  - Haemorrhoidal haemorrhage [Unknown]
  - Haemorrhoids [Not Recovered/Not Resolved]

NARRATIVE: CASE EVENT DATE: 201412
